FAERS Safety Report 8707439 (Version 3)
Quarter: 2014Q2

REPORT INFORMATION
  Report Type: Spontaneous
  Country: US (occurrence: US)
  Receive Date: 20120803
  Receipt Date: 20140617
  Transmission Date: 20141212
  Serious: Yes (Other)
  Sender: FDA-Public Use
  Company Number: US-ASTRAZENECA-2012SE52256

PATIENT
  Age: 63 Year
  Sex: Female
  Weight: 65.8 kg

DRUGS (11)
  1. NEXIUM [Suspect]
     Indication: HYPERCHLORHYDRIA
     Route: 048
     Dates: start: 2013
  2. NEXIUM [Suspect]
     Indication: ABDOMINAL DISTENSION
     Route: 048
     Dates: start: 2013
  3. NEXIUM [Suspect]
     Indication: GASTRITIS
     Route: 048
     Dates: start: 2013
  4. LASIX [Concomitant]
     Indication: GASTRIC DISORDER
     Route: 048
     Dates: start: 2010
  5. AMBIEN [Concomitant]
     Indication: SLEEP DISORDER
     Route: 048
  6. ZANAX [Concomitant]
     Indication: PANIC ATTACK
     Route: 048
     Dates: start: 2010
  7. ZANAX [Concomitant]
     Indication: STRESS
     Route: 048
     Dates: start: 2010
  8. SPIRONOLACT [Concomitant]
     Indication: HYPERTENSION
     Dates: start: 2010
  9. HYOSCYAMINER ER [Concomitant]
     Indication: DYSPEPSIA
     Route: 048
     Dates: start: 2010
  10. MELOXICAM [Concomitant]
     Indication: ARTHRITIS
     Dates: start: 2014
  11. EQUATE OVER [Concomitant]
     Dosage: OVER 50, UNKNOWN, DAILY
     Route: 048
     Dates: start: 2010

REACTIONS (6)
  - Haemoptysis [Recovering/Resolving]
  - Pain in extremity [Unknown]
  - Stress at work [Recovered/Resolved]
  - Malaise [Unknown]
  - Abdominal pain upper [Unknown]
  - Drug dose omission [Unknown]
